FAERS Safety Report 7062575-6 (Version None)
Quarter: 2010Q4

REPORT INFORMATION
  Report Type: 
  Country: None (occurrence: None)
  Receive Date: 20101026
  Receipt Date: 20091210
  Transmission Date: 20110411
  Serious: No
  Sender: FDA-Public Use
  Company Number: US-PFIZER INC-2009290448

PATIENT
  Sex: Female

DRUGS (3)
  1. LIPITOR [Suspect]
     Dosage: UNK
     Route: 065
     Dates: end: 20091020
  2. PLAVIX [Suspect]
     Dosage: UNK
     Route: 048
     Dates: start: 20090904
  3. MONOPRIL [Suspect]
     Indication: HYPERTENSION
     Dosage: UNK
     Route: 065

REACTIONS (4)
  - ASTHENIA [None]
  - FEELING JITTERY [None]
  - MUSCULOSKELETAL STIFFNESS [None]
  - TREMOR [None]
